FAERS Safety Report 25405785 (Version 1)
Quarter: 2025Q2

REPORT INFORMATION
  Report Type: Spontaneous
  Country: IT (occurrence: IT)
  Receive Date: 20250606
  Receipt Date: 20250606
  Transmission Date: 20250716
  Serious: Yes (Other)
  Sender: MYLAN
  Company Number: IT-MYLANLABS-2025M1047770

PATIENT
  Age: 70 Year
  Sex: Female

DRUGS (24)
  1. PREDNISONE [Suspect]
     Active Substance: PREDNISONE
     Indication: Plasma cell myeloma
  2. PREDNISONE [Suspect]
     Active Substance: PREDNISONE
     Route: 065
  3. PREDNISONE [Suspect]
     Active Substance: PREDNISONE
     Route: 065
  4. PREDNISONE [Suspect]
     Active Substance: PREDNISONE
  5. BORTEZOMIB [Suspect]
     Active Substance: BORTEZOMIB
     Indication: Plasma cell myeloma
  6. BORTEZOMIB [Suspect]
     Active Substance: BORTEZOMIB
  7. BORTEZOMIB [Suspect]
     Active Substance: BORTEZOMIB
     Route: 065
  8. BORTEZOMIB [Suspect]
     Active Substance: BORTEZOMIB
     Route: 065
  9. BORTEZOMIB [Suspect]
     Active Substance: BORTEZOMIB
  10. BORTEZOMIB [Suspect]
     Active Substance: BORTEZOMIB
  11. BORTEZOMIB [Suspect]
     Active Substance: BORTEZOMIB
     Route: 065
  12. BORTEZOMIB [Suspect]
     Active Substance: BORTEZOMIB
     Route: 065
  13. MELPHALAN [Suspect]
     Active Substance: MELPHALAN
     Indication: Plasma cell myeloma
  14. MELPHALAN [Suspect]
     Active Substance: MELPHALAN
     Route: 065
  15. MELPHALAN [Suspect]
     Active Substance: MELPHALAN
     Route: 065
  16. MELPHALAN [Suspect]
     Active Substance: MELPHALAN
  17. DEXAMETHASONE [Suspect]
     Active Substance: DEXAMETHASONE
     Indication: Plasma cell myeloma
  18. DEXAMETHASONE [Suspect]
     Active Substance: DEXAMETHASONE
  19. DEXAMETHASONE [Suspect]
     Active Substance: DEXAMETHASONE
     Route: 065
  20. DEXAMETHASONE [Suspect]
     Active Substance: DEXAMETHASONE
     Route: 065
  21. DEXAMETHASONE [Suspect]
     Active Substance: DEXAMETHASONE
  22. DEXAMETHASONE [Suspect]
     Active Substance: DEXAMETHASONE
  23. DEXAMETHASONE [Suspect]
     Active Substance: DEXAMETHASONE
     Route: 065
  24. DEXAMETHASONE [Suspect]
     Active Substance: DEXAMETHASONE
     Route: 065

REACTIONS (2)
  - Toxicity to various agents [Unknown]
  - Drug ineffective [Unknown]
